FAERS Safety Report 23676195 (Version 1)
Quarter: 2024Q1

REPORT INFORMATION
  Report Type: Spontaneous
  Country: US (occurrence: US)
  Receive Date: 20240327
  Receipt Date: 20240327
  Transmission Date: 20240409
  Serious: No
  Sender: FDA-Public Use
  Company Number: US-Blueprint Medicines Corporation-2859

PATIENT
  Age: 73 Year
  Sex: Female

DRUGS (1)
  1. AYVAKIT [Suspect]
     Active Substance: AVAPRITINIB
     Indication: Gastrointestinal stromal tumour
     Route: 048
     Dates: start: 20240309

REACTIONS (3)
  - Fall [Recovering/Resolving]
  - Wound [Recovering/Resolving]
  - Scalp haematoma [Recovering/Resolving]

NARRATIVE: CASE EVENT DATE: 20240318
